FAERS Safety Report 5467936-4 (Version None)
Quarter: 2007Q3

REPORT INFORMATION
  Report Type: 
  Country: None (occurrence: None)
  Receive Date: 20070926
  Receipt Date: 20070913
  Transmission Date: 20080115
  Serious: Yes (Other)
  Sender: FDA-Public Use
  Company Number: ES-KINGPHARMUSA00001-K200701189

PATIENT

DRUGS (1)
  1. APLISOL [Suspect]
     Indication: TUBERCULIN TEST

REACTIONS (11)
  - ABSCESS [None]
  - ACANTHOSIS [None]
  - ERYTHEMA [None]
  - PARAKERATOSIS [None]
  - PRURIGO [None]
  - PRURITUS [None]
  - PUSTULAR PSORIASIS [None]
  - RASH PAPULAR [None]
  - RASH PUSTULAR [None]
  - SKIN HYPERPIGMENTATION [None]
  - SKIN OEDEMA [None]
